FAERS Safety Report 10711850 (Version 2)
Quarter: 2015Q1

REPORT INFORMATION
  Report Type: Spontaneous
  Country: US (occurrence: US)
  Receive Date: 20150114
  Receipt Date: 20150205
  Transmission Date: 20150721
  Serious: Yes (Hospitalization, Other)
  Sender: FDA-Public Use
  Company Number: US-PFIZER INC-2015009461

PATIENT
  Age: 72 Year
  Sex: Male
  Weight: 104 kg

DRUGS (1)
  1. VIAGRA [Suspect]
     Active Substance: SILDENAFIL CITRATE
     Indication: ERECTILE DYSFUNCTION
     Dosage: 100 MG, UNK

REACTIONS (10)
  - Gastric infection [Unknown]
  - Chills [Unknown]
  - Constipation [Unknown]
  - Weight decreased [Unknown]
  - Heart valve incompetence [Unknown]
  - Sepsis [Unknown]
  - Drug ineffective [Unknown]
  - Volvulus [Unknown]
  - Dehydration [Unknown]
  - Pneumonia [Unknown]
